FAERS Safety Report 5796355-6 (Version None)
Quarter: 2008Q2

REPORT INFORMATION
  Report Type: 
  Country: None (occurrence: None)
  Receive Date: 20080630
  Receipt Date: 20080630
  Transmission Date: 20081010
  Serious: No
  Sender: FDA-Public Use
  Company Number: None

PATIENT
  Age: 32 Year
  Sex: Female
  Weight: 102.0593 kg

DRUGS (2)
  1. CYMBALTA [Suspect]
     Indication: BIPOLAR DISORDER
     Dosage: ONCE DAILY PO
     Route: 048
     Dates: start: 20080301, end: 20080620
  2. CYMBALTA [Suspect]
     Indication: DEPRESSION
     Dosage: ONCE DAILY PO
     Route: 048
     Dates: start: 20080301, end: 20080620

REACTIONS (13)
  - ABNORMAL DREAMS [None]
  - DIARRHOEA [None]
  - DIZZINESS [None]
  - DRUG WITHDRAWAL SYNDROME [None]
  - DYSPEPSIA [None]
  - EDUCATIONAL PROBLEM [None]
  - FATIGUE [None]
  - FEELING ABNORMAL [None]
  - INFLUENZA [None]
  - INSOMNIA [None]
  - NAUSEA [None]
  - PARAESTHESIA [None]
  - PRURITUS [None]
